FAERS Safety Report 8216709-8 (Version None)
Quarter: 2012Q1

REPORT INFORMATION
  Report Type: 
  Country: None (occurrence: None)
  Receive Date: 20120316
  Receipt Date: 20120308
  Transmission Date: 20120608
  Serious: Yes (Hospitalization)
  Sender: FDA-Public Use
  Company Number: CA-ROCHE-1042452

PATIENT
  Sex: Female

DRUGS (8)
  1. SYNTHROID [Concomitant]
     Dates: start: 20110926
  2. PEGINTERFERON ALFA-2A [Suspect]
     Indication: HEPATITIS C
     Dates: start: 20111128, end: 20120220
  3. FOSAMAX [Concomitant]
     Dates: start: 20110926
  4. QUININE SULFATE [Concomitant]
  5. CALCIUM 600 + D PRODUCT NOS [Concomitant]
     Dates: start: 20110926
  6. COPEGUS [Suspect]
     Indication: HEPATITIS C
     Route: 048
     Dates: start: 20111017, end: 20120220
  7. EPREX [Concomitant]
  8. CIPROFLOXACIN HYDROCHLORIDE [Concomitant]

REACTIONS (2)
  - THROMBOCYTOPENIA [None]
  - PHARYNGITIS [None]
